FAERS Safety Report 25045180 (Version 1)
Quarter: 2025Q1

REPORT INFORMATION
  Report Type: Spontaneous
  Country: US (occurrence: US)
  Receive Date: 20250306
  Receipt Date: 20250306
  Transmission Date: 20250409
  Serious: Yes (Life-Threatening, Hospitalization, Other)
  Sender: ACCORD
  Company Number: US-Accord-472230

PATIENT
  Age: 62 Year
  Sex: Male

DRUGS (10)
  1. CISPLATIN [Suspect]
     Active Substance: CISPLATIN
     Indication: Small cell lung cancer
     Dates: start: 202303, end: 2023
  2. ETOPOSIDE [Suspect]
     Active Substance: ETOPOSIDE
     Indication: Small cell lung cancer
     Dates: start: 202303, end: 2023
  3. DURVALUMAB [Suspect]
     Active Substance: DURVALUMAB
     Indication: Small cell lung cancer
     Dates: start: 202303, end: 2023
  4. ETOPOSIDE [Suspect]
     Active Substance: ETOPOSIDE
     Indication: Lymphadenopathy mediastinal
     Dates: start: 202303, end: 2023
  5. ETOPOSIDE [Suspect]
     Active Substance: ETOPOSIDE
     Indication: Metastases to neck
     Dates: start: 202303, end: 2023
  6. DURVALUMAB [Suspect]
     Active Substance: DURVALUMAB
     Indication: Small cell lung cancer
     Dates: start: 202307
  7. CISPLATIN [Suspect]
     Active Substance: CISPLATIN
     Indication: Lymphadenopathy mediastinal
     Dates: start: 202303, end: 2023
  8. CISPLATIN [Suspect]
     Active Substance: CISPLATIN
     Indication: Metastases to neck
     Dates: start: 202303, end: 2023
  9. DURVALUMAB [Suspect]
     Active Substance: DURVALUMAB
     Indication: Lymphadenopathy mediastinal
     Dates: start: 202303, end: 2023
  10. DURVALUMAB [Suspect]
     Active Substance: DURVALUMAB
     Indication: Metastases to neck
     Dates: start: 202303, end: 2023

REACTIONS (4)
  - Acute myocardial infarction [Recovering/Resolving]
  - Coronary artery thrombosis [Recovering/Resolving]
  - Coronary artery disease [Recovering/Resolving]
  - Ventricular hypokinesia [Recovering/Resolving]

NARRATIVE: CASE EVENT DATE: 20231001
